FAERS Safety Report 5167452-3 (Version None)
Quarter: 2006Q4

REPORT INFORMATION
  Report Type: 
  Country: None (occurrence: None)
  Receive Date: 20061207
  Receipt Date: 20061121
  Transmission Date: 20070319
  Serious: Yes (Hospitalization, Other)
  Sender: FDA-Public Use
  Company Number: NO-MERCK-0611NOR00016

PATIENT
  Age: 73 Year
  Sex: Male

DRUGS (4)
  1. ZOCOR [Suspect]
     Route: 048
     Dates: end: 20061101
  2. CYCLOSPORINE [Suspect]
     Route: 048
  3. EVEROLIMUS [Suspect]
     Route: 048
     Dates: end: 20061101
  4. WARFARIN SODIUM [Concomitant]
     Route: 065

REACTIONS (3)
  - DRUG INTERACTION [None]
  - RENAL FAILURE ACUTE [None]
  - RHABDOMYOLYSIS [None]
